FAERS Safety Report 24114467 (Version 1)
Quarter: 2024Q3

REPORT INFORMATION
  Report Type: Spontaneous
  Country: FR (occurrence: FR)
  Receive Date: 20240720
  Receipt Date: 20240720
  Transmission Date: 20241017
  Serious: Yes (Hospitalization)
  Sender: RANBAXY
  Company Number: FR-AFSSAPS-LM2024000245

PATIENT
  Age: 79 Year
  Sex: Female
  Weight: 46.4 kg

DRUGS (8)
  1. GEMCITABINE [Suspect]
     Active Substance: GEMCITABINE
     Indication: Cholangiocarcinoma
     Dosage: 1065 MILLIGRAM
     Route: 040
     Dates: start: 20240322, end: 20240322
  2. GEMCITABINE [Suspect]
     Active Substance: GEMCITABINE
     Dosage: 1065 MILLIGRAM
     Route: 040
     Dates: start: 20240315, end: 20240315
  3. GEMCITABINE [Suspect]
     Active Substance: GEMCITABINE
     Dosage: 1065 MILLIGRAM
     Route: 040
     Dates: start: 20240301, end: 20240301
  4. GEMCITABINE [Suspect]
     Active Substance: GEMCITABINE
     Dosage: 1073 MILLIGRAM
     Route: 040
     Dates: start: 20240408, end: 20240408
  5. METFORMIN [Concomitant]
     Active Substance: METFORMIN HYDROCHLORIDE
     Indication: Product used for unknown indication
     Dosage: UNK
     Route: 065
  6. SPIRONOLACTONE [Concomitant]
     Active Substance: SPIRONOLACTONE
     Indication: Product used for unknown indication
     Dosage: UNK
     Route: 065
  7. OZEMPIC [Concomitant]
     Active Substance: SEMAGLUTIDE
     Indication: Product used for unknown indication
     Dosage: UNK
     Route: 065
  8. FUROSEMIDE [Concomitant]
     Active Substance: FUROSEMIDE
     Indication: Product used for unknown indication
     Dosage: UNK
     Route: 065

REACTIONS (4)
  - Anaemia [Recovering/Resolving]
  - Thrombocytopenia [Not Recovered/Not Resolved]
  - Acute kidney injury [Recovered/Resolved]
  - Diarrhoea [Recovered/Resolved]

NARRATIVE: CASE EVENT DATE: 20240411
